FAERS Safety Report 14963731 (Version 3)
Quarter: 2019Q2

REPORT INFORMATION
  Report Type: Report from Study
  Country: DE (occurrence: DE)
  Receive Date: 20180601
  Receipt Date: 20190501
  Transmission Date: 20190711
  Serious: Yes (Hospitalization)
  Sender: FDA-Public Use
  Company Number: DE-PFIZER INC-2018218101

PATIENT
  Age: 67 Year
  Sex: Female
  Weight: 44 kg

DRUGS (22)
  1. PACLITAXEL. [Suspect]
     Active Substance: PACLITAXEL
     Dosage: 129 MG, UNK
     Route: 042
     Dates: start: 20120828
  2. BEVACIZUMAB. [Suspect]
     Active Substance: BEVACIZUMAB
     Dosage: 750 MG, UNK
     Route: 042
     Dates: start: 20120124
  3. BEVACIZUMAB. [Suspect]
     Active Substance: BEVACIZUMAB
     Dosage: 425 MG, UNK
     Route: 042
     Dates: start: 20120807
  4. CAPECITABINE. [Suspect]
     Active Substance: CAPECITABINE
     Indication: BREAST CANCER
     Dosage: 2500 MG/M2, UNK
     Dates: start: 20111122, end: 20120306
  5. CAPECITABINE. [Suspect]
     Active Substance: CAPECITABINE
     Dosage: 1900 MG/M2, SUBSEQUENT DOSE ON 03JAN2012
     Dates: start: 20120306
  6. PACLITAXEL. [Suspect]
     Active Substance: PACLITAXEL
     Dosage: 129 MG, UNK
     Route: 042
     Dates: start: 20120619
  7. PACLITAXEL. [Suspect]
     Active Substance: PACLITAXEL
     Dosage: 129 MG, UNK
     Route: 042
     Dates: start: 20120703
  8. PACLITAXEL. [Suspect]
     Active Substance: PACLITAXEL
     Dosage: 129 MG, UNK
     Route: 042
     Dates: start: 20120717
  9. TRIAMTEREN [Concomitant]
     Active Substance: TRIAMTERENE
     Dosage: UNK
  10. HYDROCHLOROTHIAZID [Concomitant]
     Active Substance: HYDROCHLOROTHIAZIDE
     Dosage: UNK
  11. PACLITAXEL. [Suspect]
     Active Substance: PACLITAXEL
     Dosage: 129 MG, UNK
     Route: 042
     Dates: start: 20120807
  12. BEVACIZUMAB. [Suspect]
     Active Substance: BEVACIZUMAB
     Dosage: 675 MG, UNK
     Route: 042
     Dates: start: 20120327
  13. BEVACIZUMAB. [Suspect]
     Active Substance: BEVACIZUMAB
     Indication: BREAST CANCER METASTATIC
     Dosage: 750 MG, EVERY 3 WEEKS
     Route: 042
     Dates: start: 20111213, end: 20120214
  14. CAPECITABINE. [Suspect]
     Active Substance: CAPECITABINE
     Dosage: 1900 MG/M2, UNK
     Dates: start: 20111213, end: 20121124
  15. PANTOPRAZOL [Concomitant]
     Active Substance: PANTOPRAZOLE SODIUM
     Indication: DYSPEPSIA
     Dosage: UNK
     Dates: start: 20120719, end: 20120721
  16. ENALAPRIL [Concomitant]
     Active Substance: ENALAPRIL
     Dosage: UNK
  17. BEVACIZUMAB. [Suspect]
     Active Substance: BEVACIZUMAB
     Dosage: 675 MG, EVERY 3 WEEKS
     Route: 042
     Dates: start: 20120306, end: 20120417
  18. BEVACIZUMAB. [Suspect]
     Active Substance: BEVACIZUMAB
     Dosage: 750 MG, EVERY TWO WEEKS
     Route: 045
     Dates: start: 20120214, end: 20120214
  19. BEVACIZUMAB. [Suspect]
     Active Substance: BEVACIZUMAB
     Dosage: 462.5 MG, UNK
     Route: 042
     Dates: start: 20120605, end: 20120703
  20. HCTZ [Concomitant]
     Active Substance: HYDROCHLOROTHIAZIDE
     Dosage: UNK
  21. CAPECITABINE. [Suspect]
     Active Substance: CAPECITABINE
     Dosage: 1900 MG/M2, UNK
     Dates: start: 20121124, end: 20121124
  22. PACLITAXEL. [Suspect]
     Active Substance: PACLITAXEL
     Indication: BREAST CANCER
     Dosage: 129 MG, UNK
     Route: 042
     Dates: start: 20120605

REACTIONS (9)
  - Chest pain [Unknown]
  - Haemoglobin decreased [Recovered/Resolved]
  - Blood pressure increased [Unknown]
  - Musculoskeletal chest pain [Unknown]
  - Dry mouth [Unknown]
  - Taste disorder [Unknown]
  - Decreased appetite [Recovered/Resolved]
  - Alanine aminotransferase abnormal [Unknown]
  - Epistaxis [Unknown]

NARRATIVE: CASE EVENT DATE: 20120124
